FAERS Safety Report 9522504 (Version 1)
Quarter: 2013Q3

REPORT INFORMATION
  Report Type: Spontaneous
  Country: US (occurrence: US)
  Receive Date: 20130913
  Receipt Date: 20130913
  Transmission Date: 20140515
  Serious: Yes (Other)
  Sender: FDA-Public Use
  Company Number: US-ROXANE LABORATORIES, INC.-2013-RO-01508RO

PATIENT
  Age: 20 Year
  Sex: Female

DRUGS (2)
  1. BALSALAZIDE [Suspect]
     Indication: COLITIS ULCERATIVE
  2. HYDROCORTISONE [Concomitant]
     Indication: COLITIS ULCERATIVE
     Route: 054

REACTIONS (2)
  - Cardiac tamponade [Unknown]
  - Myocarditis [Unknown]
